FAERS Safety Report 8936564 (Version 1)
Quarter: 2012Q4

REPORT INFORMATION
  Report Type: 
  Country: FR (occurrence: FR)
  Receive Date: 20121130
  Receipt Date: 20121130
  Transmission Date: 20130627
  Serious: Yes (Life-Threatening)
  Sender: FDA-Public Use
  Company Number: FR-PFIZER INC-2012296916

PATIENT
  Age: 55 Year
  Sex: Male

DRUGS (3)
  1. SUTENT [Suspect]
     Indication: RENAL CANCER
     Dosage: UNK
     Route: 048
     Dates: start: 201207, end: 201210
  2. BI-PROFENID [Suspect]
     Indication: ABDOMINAL PAIN
     Dosage: 100 mg, 2x/day
     Route: 048
     Dates: start: 20121004
  3. DUROGESIC [Concomitant]
     Indication: ABDOMINAL PAIN
     Dosage: 25 ug, UNK
     Dates: start: 20121004

REACTIONS (4)
  - Abdominal pain [Recovered/Resolved]
  - Small intestinal perforation [Recovered/Resolved]
  - Peritonitis [Recovered/Resolved]
  - Septic shock [Recovered/Resolved]
